FAERS Safety Report 20840924 (Version 1)
Quarter: 2022Q2

REPORT INFORMATION
  Report Type: Report from Study
  Country: CA (occurrence: CA)
  Receive Date: 20220517
  Receipt Date: 20220517
  Transmission Date: 20220721
  Serious: Yes (Hospitalization, Other)
  Sender: FDA-Public Use
  Company Number: CA-PFIZER INC-202200700111

PATIENT
  Age: 72 Year
  Sex: Female
  Weight: 55 kg

DRUGS (23)
  1. RITUXIMAB [Suspect]
     Active Substance: RITUXIMAB
     Indication: Rheumatoid arthritis
     Dosage: 1000 MG
     Route: 042
  2. RITUXIMAB [Suspect]
     Active Substance: RITUXIMAB
     Indication: Rheumatoid arthritis
     Route: 042
  3. ACETAMINOPHEN [Concomitant]
     Active Substance: ACETAMINOPHEN
     Indication: Premedication
     Dosage: 1000 MG
     Route: 048
  4. ACETAMINOPHEN [Concomitant]
     Active Substance: ACETAMINOPHEN
     Dosage: UNK
     Route: 065
  5. ASPIRIN [Concomitant]
     Active Substance: ASPIRIN
     Dosage: UNK, 1X/DAY
     Route: 065
  6. ARAVA [Concomitant]
     Active Substance: LEFLUNOMIDE
  7. ATORVASTATIN [Concomitant]
     Active Substance: ATORVASTATIN
     Dosage: 40 MG, 1X/DAY
     Route: 065
  8. BISOPROLOL [Concomitant]
     Active Substance: BISOPROLOL
     Dosage: 10 MG, 1X/DAY
     Route: 065
  9. BRILINTA [Concomitant]
     Active Substance: TICAGRELOR
  10. CELEBREX [Concomitant]
     Active Substance: CELECOXIB
     Dosage: 200 MG, 1X/DAY
     Route: 065
  11. DIPHENHYDRAMINE [Concomitant]
     Active Substance: DIPHENHYDRAMINE
     Indication: Premedication
     Dosage: 50 MG
     Route: 048
  12. FOLIC ACID [Concomitant]
     Active Substance: FOLIC ACID
     Dosage: 5 MG, WEEKLY
     Route: 065
  13. IBUPROFEN [Concomitant]
     Active Substance: IBUPROFEN
  14. LEFLUNOMIDE [Concomitant]
     Active Substance: LEFLUNOMIDE
     Dosage: 20 MG, 1X/DAY
     Route: 065
  15. MAGNESIUM [Concomitant]
     Active Substance: MAGNESIUM
  16. METHOTREXATE [Concomitant]
     Active Substance: METHOTREXATE
     Dosage: 12.5 MG, WEEKLY
     Route: 048
  17. METHOTREXATE [Concomitant]
     Active Substance: METHOTREXATE
     Dosage: 15 MG, WEEKLY
     Route: 048
  18. METHYLPREDNISOLONE [Concomitant]
     Active Substance: METHYLPREDNISOLONE
     Indication: Premedication
     Dosage: 100 MG
     Route: 042
  19. OMNARIS [Concomitant]
     Active Substance: CICLESONIDE
  20. PANTOPRAZOLE [Concomitant]
     Active Substance: PANTOPRAZOLE
     Indication: Gastrointestinal disorder prophylaxis
     Dosage: 40 MG, 1X/DAY
     Route: 065
  21. PERINDOPRIL [Concomitant]
     Active Substance: PERINDOPRIL
     Dosage: 2 MG, 1X/DAY
     Route: 065
  22. VITAMIN C [Concomitant]
     Active Substance: ASCORBIC ACID
  23. XANTOFYL PALMITATE [Concomitant]
     Active Substance: XANTOFYL PALMITATE

REACTIONS (14)
  - Arthropathy [Recovered/Resolved]
  - Bronchiectasis [Recovered/Resolved]
  - C-reactive protein increased [Recovered/Resolved]
  - Eosinophilia [Recovered/Resolved]
  - Fatigue [Recovered/Resolved]
  - Haemoglobin decreased [Recovered/Resolved]
  - Hypogammaglobulinaemia [Recovered/Resolved]
  - Joint swelling [Recovered/Resolved]
  - Pneumonia [Recovered/Resolved]
  - Red blood cell sedimentation rate increased [Recovered/Resolved]
  - Rheumatoid arthritis [Recovered/Resolved]
  - Vasomotor rhinitis [Recovered/Resolved]
  - Weight decreased [Recovered/Resolved]
  - Weight increased [Recovered/Resolved]
